FAERS Safety Report 21024913 (Version 1)
Quarter: 2022Q2

REPORT INFORMATION
  Report Type: Spontaneous
  Country: NO (occurrence: NO)
  Receive Date: 20220629
  Receipt Date: 20220629
  Transmission Date: 20220721
  Serious: Yes (Life-Threatening)
  Sender: FDA-Public Use
  Company Number: None

PATIENT
  Age: 35 Year
  Sex: Female

DRUGS (1)
  1. PENICILLIN V POTASSIUM [Suspect]
     Active Substance: PENICILLIN V POTASSIUM
     Indication: Product used for unknown indication
     Dosage: 1 G
     Route: 065

REACTIONS (8)
  - Anaphylactic shock [Recovered/Resolved]
  - General physical health deterioration [Unknown]
  - Rash [Recovered/Resolved]
  - Hypersensitivity [Recovered/Resolved]
  - Arthropathy [Unknown]
  - Dyspnoea [Unknown]
  - Pruritus [Recovered/Resolved]
  - Swelling [Recovered/Resolved]
